FAERS Safety Report 5650784-X (Version None)
Quarter: 2008Q1

REPORT INFORMATION
  Report Type: 
  Country: None (occurrence: None)
  Receive Date: 20080131
  Receipt Date: 20071215
  Transmission Date: 20080703
  Serious: No
  Sender: FDA-Public Use
  Company Number: US200712003374

PATIENT
  Age: 67 Year
  Sex: Female
  Weight: 88.9 kg

DRUGS (7)
  1. BYETTA [Suspect]
     Indication: TYPE 2 DIABETES MELLITUS
     Dosage: 5 UG, 2/D, SUBCUTANEOUS
     Route: 058
     Dates: start: 20071213
  2. METFORMIN HCL [Concomitant]
  3. STARLIX [Concomitant]
  4. NEXIUM [Concomitant]
  5. PROTONIX [Concomitant]
  6. OMEPRAZOLE [Concomitant]
  7. CICLOPIROX (CICLOPIROX) [Concomitant]

REACTIONS (3)
  - ABDOMINAL DISTENSION [None]
  - BLOOD GLUCOSE DECREASED [None]
  - EARLY SATIETY [None]
